FAERS Safety Report 9742642 (Version 2)
Quarter: 2015Q3

REPORT INFORMATION
  Report Type: Spontaneous
  Country: US (occurrence: US)
  Receive Date: 20131210
  Receipt Date: 20150804
  Transmission Date: 20151125
  Serious: No
  Sender: FDA-Public Use
  Company Number: US-GILEAD-2009-0025239

PATIENT
  Age: 62 Year
  Sex: Female

DRUGS (15)
  1. TRAMADOL. [Concomitant]
     Active Substance: TRAMADOL
  2. ATENOLOL. [Concomitant]
     Active Substance: ATENOLOL
  3. POTASSIUM [Concomitant]
     Active Substance: POTASSIUM
  4. LISINOPRIL. [Concomitant]
     Active Substance: LISINOPRIL
  5. FUROSEMIDE. [Concomitant]
     Active Substance: FUROSEMIDE
  6. SPIRONOLACTONE. [Concomitant]
     Active Substance: SPIRONOLACTONE
  7. WARFARIN [Concomitant]
     Active Substance: WARFARIN
  8. PREDNISONE. [Concomitant]
     Active Substance: PREDNISONE
  9. LETAIRIS [Suspect]
     Active Substance: AMBRISENTAN
     Indication: PULMONARY HYPERTENSION
     Route: 048
     Dates: start: 20090916
  10. REVATIO [Concomitant]
     Active Substance: SILDENAFIL CITRATE
  11. FOSAMAX [Concomitant]
     Active Substance: ALENDRONATE SODIUM
  12. URSODIOL. [Concomitant]
     Active Substance: URSODIOL
  13. AMLODIPINE [Concomitant]
     Active Substance: AMLODIPINE BESYLATE
  14. MAGNESIUM [Concomitant]
     Active Substance: MAGNESIUM
  15. VITAMIN E [Concomitant]
     Active Substance: .ALPHA.-TOCOPHEROL

REACTIONS (2)
  - Arthralgia [Unknown]
  - Tremor [Unknown]
